FAERS Safety Report 4378668-8 (Version None)
Quarter: 2004Q2

REPORT INFORMATION
  Report Type: 
  Country: None (occurrence: None)
  Receive Date: 20040610
  Receipt Date: 20040601
  Transmission Date: 20050107
  Serious: Yes (Other)
  Sender: FDA-Public Use
  Company Number: 139052USA

PATIENT
  Age: 79 Year
  Sex: Female

DRUGS (2)
  1. PIMOZIDE [Suspect]
     Route: 048
  2. RISPERIDOL CONSTA [Suspect]
     Indication: SCHIZOPHRENIA
     Route: 030

REACTIONS (1)
  - THROMBOCYTOPENIA [None]
